FAERS Safety Report 6004137-5 (Version None)
Quarter: 2008Q4

REPORT INFORMATION
  Report Type: 
  Country: None (occurrence: None)
  Receive Date: 20081215
  Receipt Date: 20081215
  Transmission Date: 20090506
  Serious: Yes (Other)
  Sender: FDA-Public Use
  Company Number: None

PATIENT
  Age: 55 Year
  Sex: Female
  Weight: 59.8748 kg

DRUGS (2)
  1. GABAPENTIN [Suspect]
     Indication: COMPLEX REGIONAL PAIN SYNDROME
     Dosage: 100 MG 3X DAY PO
     Route: 048
     Dates: start: 20081206, end: 20081212
  2. GABAPENTIN [Suspect]
     Indication: NEUROPATHY PERIPHERAL
     Dosage: 100 MG 3X DAY PO
     Route: 048
     Dates: start: 20081206, end: 20081212

REACTIONS (3)
  - AFFECT LABILITY [None]
  - NAUSEA [None]
  - TACHYPHRENIA [None]
